FAERS Safety Report 5517444-7 (Version None)
Quarter: 2007Q4

REPORT INFORMATION
  Report Type: 
  Country: None (occurrence: None)
  Receive Date: 20071114
  Receipt Date: 20071108
  Transmission Date: 20080405
  Serious: Yes (Hospitalization, Other)
  Sender: FDA-Public Use
  Company Number: US-ASTRAZENECA-2007UW25959

PATIENT
  Age: 55 Year
  Sex: Male
  Weight: 86.2 kg

DRUGS (8)
  1. SEROQUEL [Suspect]
     Indication: INSOMNIA
     Route: 048
     Dates: start: 20030101
  2. DURAGESIC-100 [Concomitant]
  3. ALLEGRA [Concomitant]
  4. NEXIUM [Concomitant]
     Dates: start: 20040101
  5. ZANTAC [Concomitant]
  6. ZOLOFT [Concomitant]
  7. WELLBUTRIN XL [Concomitant]
  8. PAXIL [Concomitant]

REACTIONS (18)
  - AGGRESSION [None]
  - AMNESIA [None]
  - CONVULSION [None]
  - DEHYDRATION [None]
  - DEMENTIA [None]
  - DIZZINESS [None]
  - DYSKINESIA [None]
  - EYE MOVEMENT DISORDER [None]
  - GLUCOSE TOLERANCE IMPAIRED [None]
  - HYPERTENSION [None]
  - IMPAIRED DRIVING ABILITY [None]
  - MOOD SWINGS [None]
  - MUSCLE TWITCHING [None]
  - NAUSEA [None]
  - PALLOR [None]
  - TACHYCARDIA [None]
  - VOMITING [None]
  - WEIGHT DECREASED [None]
